FAERS Safety Report 21601240 (Version 1)
Quarter: 2022Q4

REPORT INFORMATION
  Report Type: Report from Study
  Country: US (occurrence: US)
  Receive Date: 20221116
  Receipt Date: 20221116
  Transmission Date: 20230112
  Serious: No
  Sender: FDA-Public Use
  Company Number: US-ABBVIE-4173209

PATIENT
  Sex: Male

DRUGS (1)
  1. SKYRIZI [Suspect]
     Active Substance: RISANKIZUMAB-RZAA
     Indication: Psoriasis
     Dosage: WEEK 0, WEEK 4 AND EVERY 12 WEEKS THEREAFTER
     Route: 058

REACTIONS (8)
  - Pain in extremity [Unknown]
  - Dizziness [Unknown]
  - Paraesthesia [Unknown]
  - Wound [Recovering/Resolving]
  - Weight decreased [Unknown]
  - Skin abrasion [Recovering/Resolving]
  - Fatigue [Unknown]
  - Skin exfoliation [Recovering/Resolving]
